FAERS Safety Report 10422996 (Version 1)
Quarter: 2014Q3

REPORT INFORMATION
  Report Type: Report from Study
  Country: US (occurrence: US)
  Receive Date: 20140902
  Receipt Date: 20140902
  Transmission Date: 20150326
  Serious: Yes (Other)
  Sender: FDA-Public Use
  Company Number: PHEH2014US016620

PATIENT
  Sex: Female
  Weight: 70.76 kg

DRUGS (32)
  1. ACETAMINOPHEN. [Concomitant]
     Active Substance: ACETAMINOPHEN
     Dosage: UNK UKN, (EXTRA STRENGTH)
  2. ALIGN [Concomitant]
     Active Substance: BIFIDOBACTERIUM LONGUM SUBSP. INFANTIS
     Dosage: UNK UKN, UNK
  3. ANUSOL HC [Concomitant]
     Active Substance: HYDROCORTISONE
     Dosage: 1 DF, PRN
     Route: 054
  4. CYMBALTA [Concomitant]
     Active Substance: DULOXETINE HYDROCHLORIDE
     Dosage: UNK UKN, UNK
  5. HYDROXYZINE HCL [Concomitant]
     Active Substance: HYDROXYZINE HYDROCHLORIDE
     Dosage: UNK UKN, UNK
  6. LEVOTHYROXINE [Concomitant]
     Active Substance: LEVOTHYROXINE
     Dosage: UNK UKN, UNK
  7. BEPREVE [Concomitant]
     Active Substance: BEPOTASTINE\BEPOTASTINE BESILATE
     Dosage: UNK UKN, UNK
  8. CLARITIN [Concomitant]
     Active Substance: LORATADINE
     Dosage: UNK UKN, UNK
  9. GAS-X [Concomitant]
     Active Substance: DIMETHICONE
     Dosage: UNK UKN, UNK (EXTRA STRENGTH)
  10. PERIDIUM [Concomitant]
     Dosage: UNK UKN, UNK
  11. TYLENOL EXTRA STRENGTH [Concomitant]
     Active Substance: ACETAMINOPHEN
     Dosage: UNK UKN, UNK
  12. WELLBUTRIN [Concomitant]
     Active Substance: BUPROPION HYDROCHLORIDE
     Dosage: UNK UKN, UNK
  13. SANDOSTATIN [Suspect]
     Active Substance: OCTREOTIDE ACETATE
     Indication: DIARRHOEA
     Dosage: UNK UKN,
     Route: 058
     Dates: start: 201401
  14. ANUSOL HC [Concomitant]
     Active Substance: HYDROCORTISONE
     Dosage: 1 DF, BID (FOR 10 DAYS)
     Route: 054
  15. DIAZEPAM. [Concomitant]
     Active Substance: DIAZEPAM
     Dosage: UNK UKN, UNK
  16. ELMIRON [Concomitant]
     Active Substance: PENTOSAN POLYSULFATE SODIUM
     Dosage: UNK UKN, UNK
  17. PRELIEF [Concomitant]
     Active Substance: CALCIUM GLYCEROPHOSPHATE
     Dosage: UNK UKN, UNK
  18. L ARGININ [Concomitant]
     Dosage: UNK UKN, UNK
  19. SEROQUEL [Concomitant]
     Active Substance: QUETIAPINE FUMARATE
     Dosage: UNK UKN, UNK
  20. ARMOUR THYROID [Concomitant]
     Active Substance: THYROID, PORCINE\THYROID, UNSPECIFIED
     Dosage: UNK UKN, UNK
  21. ATENOLOL. [Concomitant]
     Active Substance: ATENOLOL
     Dosage: UNK UKN, UNK
  22. EXCEDRIN MIGRAINE [Concomitant]
     Active Substance: ACETAMINOPHEN\ASPIRIN\CAFFEINE
     Dosage: 250 MG,(250- 250- 65 MG)
  23. OMEPRAZOLE. [Concomitant]
     Active Substance: OMEPRAZOLE
     Dosage: 1 DF, QD
     Route: 048
  24. IRON [Concomitant]
     Active Substance: IRON
     Dosage: UNK UKN, UNK
  25. SANDOSTATIN [Suspect]
     Active Substance: OCTREOTIDE ACETATE
     Indication: OFF LABEL USE
     Dosage: 100 UG, TID
     Route: 058
  26. AMITRIPTYLINE [Concomitant]
     Active Substance: AMITRIPTYLINE
     Dosage: UNK UKN, UNK
  27. ESCITALOPRAM [Concomitant]
     Active Substance: ESCITALOPRAM OXALATE
     Dosage: UNK UKN, UNK
  28. MULTI-VIT [Concomitant]
     Active Substance: VITAMINS
     Dosage: UNK UKN, UNK
  29. VITAMIN D3 [Concomitant]
     Active Substance: CHOLECALCIFEROL
     Dosage: 5000 U, UNK
  30. SANDOSTATIN LAR DEPOT [Suspect]
     Active Substance: OCTREOTIDE ACETATE
     Dosage: UNK UKN, UNK
  31. ANTIDEPRESSANTS [Concomitant]
     Active Substance: UNSPECIFIED INGREDIENT
     Dosage: UNK UKN, UNK
  32. PRESERVISION [Concomitant]
     Dosage: UNK UKN, UNK

REACTIONS (29)
  - Pruritus [Unknown]
  - Faeces discoloured [Unknown]
  - Diarrhoea [Not Recovered/Not Resolved]
  - Anxiety [Unknown]
  - Abdominal pain [Unknown]
  - Dyspnoea [Unknown]
  - Amnesia [Unknown]
  - Dry eye [Unknown]
  - Temperature intolerance [Unknown]
  - Drug effect decreased [Unknown]
  - Dysuria [Unknown]
  - Stomatitis [Unknown]
  - Cough [Unknown]
  - Urinary tract infection [Unknown]
  - Dizziness [Unknown]
  - Abdominal pain upper [Unknown]
  - Dysphonia [Unknown]
  - Back pain [Unknown]
  - Arthralgia [Unknown]
  - Myalgia [Unknown]
  - Headache [Unknown]
  - Dry mouth [Unknown]
  - Confusional state [Unknown]
  - Depression [Unknown]
  - Heart rate irregular [Unknown]
  - Large intestine polyp [Unknown]
  - Night sweats [Unknown]
  - Insomnia [Unknown]
  - Blood urine present [Unknown]
